FAERS Safety Report 6649285-1 (Version None)
Quarter: 2010Q1

REPORT INFORMATION
  Report Type: 
  Country: None (occurrence: None)
  Receive Date: 20100324
  Receipt Date: 20100311
  Transmission Date: 20100710
  Serious: Yes (Hospitalization, Other)
  Sender: FDA-Public Use
  Company Number: PHEH2005US10676

PATIENT

DRUGS (66)
  1. ZOMETA [Suspect]
     Indication: HYPERCALCAEMIA
     Dosage: 4 MG, UNK
     Dates: start: 20011226, end: 20041208
  2. ZOMETA [Suspect]
     Dates: start: 20050401, end: 20050825
  3. AREDIA [Suspect]
     Indication: HYPERCALCAEMIA
     Dosage: 90 MG, QMO
     Dates: start: 20010315, end: 20011226
  4. AREDIA [Suspect]
     Dates: start: 20030201, end: 20050101
  5. FEMARA [Concomitant]
     Dosage: 2.5MG QD
     Route: 048
     Dates: start: 20020123
  6. HERCEPTIN [Concomitant]
     Dosage: Q3WK
     Dates: start: 20020626
  7. TAXOTERE [Concomitant]
     Dosage: UNK, UNK
     Dates: start: 20010328, end: 20010703
  8. NAVELBINE [Concomitant]
     Dosage: UNK, UNK
     Dates: start: 20010703, end: 20020910
  9. LEVAQUIN [Concomitant]
  10. ATIVAN [Concomitant]
     Indication: NAUSEA
     Dosage: 1MG Q8H PRN
     Dates: start: 20020123
  11. PROCRIT [Concomitant]
  12. MARINOL [Concomitant]
     Indication: NAUSEA
     Dosage: 5MG UNK
  13. PEPCID [Concomitant]
  14. PERCOCET [Concomitant]
  15. INNOHEP [Concomitant]
     Dosage: 13,000 UNK
     Dates: start: 20030820, end: 20030922
  16. ANZEMET [Concomitant]
  17. DEXAMETHASONE [Concomitant]
  18. GEMZAR [Concomitant]
     Dates: start: 20010827, end: 20010829
  19. LOVENOX [Concomitant]
     Dates: start: 20030101
  20. AMBIEN [Concomitant]
     Indication: SLEEP DISORDER
     Dosage: 10MG QHS
     Dates: start: 20020123
  21. PAXIL [Concomitant]
     Indication: DEPRESSION
     Dosage: 40MG QD
     Route: 048
     Dates: start: 20020123
  22. COUMADIN [Concomitant]
     Dosage: 1MG QD
     Route: 048
  23. LIPITOR [Concomitant]
     Dosage: 10MG QD
  24. CELEBREX [Concomitant]
     Indication: ARTHRITIS
     Dosage: 200MG BID
     Route: 048
     Dates: start: 20010329
  25. NEURONTIN [Concomitant]
     Indication: MUSCLE SPASMS
     Dosage: 1200MG QD
     Dates: start: 20030801
  26. QUININE [Concomitant]
     Indication: MUSCLE SPASMS
     Dates: start: 20030402
  27. ALLEGRA [Concomitant]
  28. IBUPROFEN [Concomitant]
     Indication: ARTHRITIS
  29. NEXIUM [Concomitant]
  30. OSCAL [Concomitant]
  31. VALIUM [Concomitant]
  32. ANALPRAM HC [Concomitant]
  33. LEXAPRO [Concomitant]
  34. CYMBALTA [Concomitant]
  35. TYLENOL PM [Concomitant]
  36. CRESTOR [Concomitant]
  37. DICLOFENAC POTASSIUM [Concomitant]
  38. AMPICILLIN [Concomitant]
  39. DIAZEPAM [Concomitant]
     Dosage: 2 MG, UNK
     Route: 048
  40. TRILEPTAL [Concomitant]
     Dosage: 300 MG, UNK
     Route: 048
  41. FASLODEX [Concomitant]
     Dosage: UNK
     Dates: start: 20070501
  42. LORTAB [Concomitant]
     Dosage: UNK
  43. GABAPENTIN [Concomitant]
  44. OXYCODONE HCL AND ACETAMINOPHEN [Concomitant]
     Dosage: 5-325 MG
  45. CYCLOBENZAPRINE [Concomitant]
     Dosage: 10 MG
  46. EMLA [Concomitant]
     Dosage: UNK
  47. COMPRO [Concomitant]
     Dosage: 25 MG
  48. WARFARIN SODIUM [Concomitant]
     Dosage: UNK
  49. ALBUTEROL [Concomitant]
     Dosage: 909 MCG
  50. FLONASE [Concomitant]
     Dosage: UNK
     Route: 045
  51. ZITHROMAX [Concomitant]
     Dosage: 250 MG
  52. CHLORHEXIDINE GLUCONATE [Concomitant]
     Dosage: UNK
  53. CLARITIN-D [Concomitant]
     Dosage: UNK
  54. PROCHLORPERAZINE [Concomitant]
     Dosage: 10 MG
  55. TUSSIONEX [Concomitant]
     Dosage: UNK
  56. ASMANEX TWISTHALER [Concomitant]
     Dosage: UNK
  57. SPIRIVA [Concomitant]
     Dosage: 18 MCG
  58. FORADIL [Concomitant]
     Dosage: UNK
  59. CIPROFLOXACIN HYDROCHLORIDE [Concomitant]
     Dosage: 500 MG
  60. DOXYCYCLINE [Concomitant]
     Dosage: UNK
  61. PROPOXYPHENE NAPSYLATE W/ ACETAMINOPHEN [Concomitant]
     Dosage: UNK
  62. METHYLPREDNISOLONE [Concomitant]
     Dosage: UNK
  63. PRILOSEC [Concomitant]
  64. HUMIBID [Concomitant]
  65. ZOCOR [Concomitant]
  66. HYCODAN                                 /CAN/ [Concomitant]

REACTIONS (106)
  - ANAEMIA [None]
  - ANEURYSM [None]
  - ANXIETY [None]
  - AORTIC DISORDER [None]
  - ARTHRITIS [None]
  - BACK PAIN [None]
  - BLOOD CALCIUM DECREASED [None]
  - BLOOD CREATININE INCREASED [None]
  - BLOOD UREA INCREASED [None]
  - BONE DEBRIDEMENT [None]
  - BONE DENSITY DECREASED [None]
  - BONE DISORDER [None]
  - BREAST CANCER RECURRENT [None]
  - CARDIOMYOPATHY [None]
  - CARPAL TUNNEL SYNDROME [None]
  - CATHETER PLACEMENT [None]
  - CATHETER REMOVAL [None]
  - CELLULITIS [None]
  - CEREBROVASCULAR ACCIDENT [None]
  - CHRONIC OBSTRUCTIVE PULMONARY DISEASE [None]
  - CONFUSIONAL STATE [None]
  - COORDINATION ABNORMAL [None]
  - CORONARY ARTERY BYPASS [None]
  - COUGH [None]
  - DEAFNESS NEUROSENSORY [None]
  - DEEP VEIN THROMBOSIS [None]
  - DEHYDRATION [None]
  - DENTAL CARE [None]
  - DEPRESSION [None]
  - DIABETES MELLITUS [None]
  - DIARRHOEA [None]
  - DIVERTICULUM [None]
  - DIZZINESS [None]
  - DROP ATTACKS [None]
  - DYSPHEMIA [None]
  - DYSPNOEA [None]
  - DYSURIA [None]
  - ERYTHEMA [None]
  - EXCESSIVE GRANULATION TISSUE [None]
  - FATIGUE [None]
  - FEMALE STERILISATION [None]
  - FISTULA [None]
  - GASTROOESOPHAGEAL REFLUX DISEASE [None]
  - GINGIVAL ULCERATION [None]
  - GINGIVITIS [None]
  - HEADACHE [None]
  - HEARING AID USER [None]
  - HIATUS HERNIA [None]
  - HYPERCALCAEMIA [None]
  - HYPERLIPIDAEMIA [None]
  - HYPERTENSION [None]
  - IMPAIRED HEALING [None]
  - INCISIONAL DRAINAGE [None]
  - INSOMNIA [None]
  - INTERVERTEBRAL DISC DEGENERATION [None]
  - JAW OPERATION [None]
  - LEUKOENCEPHALOPATHY [None]
  - LOBAR PNEUMONIA [None]
  - LOOSE TOOTH [None]
  - MALIGNANT NEOPLASM PROGRESSION [None]
  - MASTICATION DISORDER [None]
  - MEDICAL DEVICE COMPLICATION [None]
  - MEMORY IMPAIRMENT [None]
  - MENINGIOMA [None]
  - MENTAL STATUS CHANGES [None]
  - METASTASES TO BONE [None]
  - METASTASIS [None]
  - MITRAL VALVE INCOMPETENCE [None]
  - MUSCLE SPASMS [None]
  - MUSCLE TWITCHING [None]
  - MUSCULAR WEAKNESS [None]
  - MUSCULOSKELETAL CHEST PAIN [None]
  - NAUSEA [None]
  - NEUROPATHY PERIPHERAL [None]
  - ORAL SURGERY [None]
  - OSTEOARTHRITIS [None]
  - OSTEOMYELITIS [None]
  - OSTEONECROSIS [None]
  - PAIN [None]
  - PAIN IN EXTREMITY [None]
  - PANCYTOPENIA [None]
  - PHARYNGEAL OEDEMA [None]
  - PLEURAL EFFUSION [None]
  - PLEURITIC PAIN [None]
  - PNEUMONIA [None]
  - POLYURIA [None]
  - PRIMARY SEQUESTRUM [None]
  - PULMONARY RADIATION INJURY [None]
  - RASH [None]
  - RESTLESS LEGS SYNDROME [None]
  - RHINITIS [None]
  - RHONCHI [None]
  - SCAR [None]
  - SLEEP APNOEA SYNDROME [None]
  - STRESS [None]
  - SWELLING [None]
  - SYNCOPE [None]
  - TELANGIECTASIA [None]
  - THYROID NEOPLASM [None]
  - TOOTH ABSCESS [None]
  - TOOTH DISORDER [None]
  - TOOTH EXTRACTION [None]
  - TOOTHACHE [None]
  - VISUAL IMPAIRMENT [None]
  - VOMITING [None]
  - WEIGHT INCREASED [None]
